FAERS Safety Report 9360919 (Version 1)
Quarter: 2013Q2

REPORT INFORMATION
  Report Type: Spontaneous
  Country: US (occurrence: US)
  Receive Date: 20130621
  Receipt Date: 20130621
  Transmission Date: 20140414
  Serious: Yes (Death, Other)
  Sender: FDA-Public Use
  Company Number: PHHY2013US062802

PATIENT
  Age: 53 Year
  Sex: Female

DRUGS (7)
  1. IDARUBICIN [Suspect]
     Indication: ACUTE MYELOID LEUKAEMIA
  2. CYTARABINE [Suspect]
     Indication: ACUTE MYELOID LEUKAEMIA
  3. HYDROXYCARBAMIDE [Suspect]
     Indication: ACUTE MYELOID LEUKAEMIA
  4. CEFEPIME [Concomitant]
     Indication: PNEUMONIA
  5. VANCOMYCIN [Concomitant]
     Indication: PNEUMONIA
  6. FLUCONAZOLE [Concomitant]
     Indication: PNEUMONIA
  7. FAMCICLOVIR [Concomitant]
     Indication: PNEUMONIA

REACTIONS (13)
  - Death [Fatal]
  - Acute febrile neutrophilic dermatosis [Unknown]
  - Acute myeloid leukaemia recurrent [Unknown]
  - Tenderness [Unknown]
  - Skin induration [Unknown]
  - Rash erythematous [Unknown]
  - Skin plaque [Unknown]
  - Skin oedema [Unknown]
  - Injury [Unknown]
  - Skin mass [Unknown]
  - Neutrophilic panniculitis [Unknown]
  - Neutropenia [Unknown]
  - Pyrexia [Unknown]
